FAERS Safety Report 18227025 (Version 1)
Quarter: 2020Q3

REPORT INFORMATION
  Report Type: Spontaneous
  Country: US (occurrence: US)
  Receive Date: 20200903
  Receipt Date: 20200903
  Transmission Date: 20201103
  Serious: No
  Sender: FDA-Public Use
  Company Number: US-PFIZER INC-2020338332

PATIENT
  Age: 77 Year
  Sex: Male

DRUGS (5)
  1. ADVIL [Suspect]
     Active Substance: IBUPROFEN
     Dosage: 3 DF, UNK
     Dates: start: 202008
  2. ADVIL [Suspect]
     Active Substance: IBUPROFEN
     Indication: ARTHRITIS
     Dosage: 3 DF, UNK
     Dates: end: 2020
  3. ADVIL [Suspect]
     Active Substance: IBUPROFEN
     Dosage: 3 DF, UNK
     Dates: start: 202003, end: 202006
  4. TYLENOL [Suspect]
     Active Substance: ACETAMINOPHEN
     Indication: ARTHRITIS
     Dosage: 2 DF, UNK
  5. VOLTAREN [DICLOFENAC] [Suspect]
     Active Substance: DICLOFENAC SODIUM
     Indication: ARTHRITIS
     Dosage: UNK, 4X/DAY (50MG)
     Dates: start: 20200827

REACTIONS (2)
  - Renal disorder [Unknown]
  - Intentional product misuse [Unknown]
